FAERS Safety Report 16473070 (Version 1)
Quarter: 2019Q2

REPORT INFORMATION
  Report Type: Spontaneous
  Country: US (occurrence: US)
  Receive Date: 20190514
  Receipt Date: 20190514
  Transmission Date: 20190711
  Serious: Yes (Other)
  Sender: FDA-Public Use
  Company Number: None

PATIENT
  Sex: Female

DRUGS (1)
  1. GLATIRAMER ACETATE INJECTION, 40MG/ML [Suspect]
     Active Substance: GLATIRAMER ACETATE
     Dates: start: 20190322, end: 20190415

REACTIONS (2)
  - Injection site haemorrhage [None]
  - Suspected product contamination [None]

NARRATIVE: CASE EVENT DATE: 20190415
